FAERS Safety Report 4993357-4 (Version None)
Quarter: 2006Q2

REPORT INFORMATION
  Report Type: 
  Country: None (occurrence: None)
  Receive Date: 20060505
  Receipt Date: 20060501
  Transmission Date: 20061013
  Serious: Yes (Other)
  Sender: FDA-Public Use
  Company Number: AU-AVENTIS-200614639GDDC

PATIENT
  Sex: Male

DRUGS (3)
  1. ARAVA [Suspect]
     Indication: ARTHRITIS
     Dosage: DOSE: UNK
  2. METHOTREXATE [Concomitant]
     Dosage: DOSE: UNK
  3. CORTICOSTEROIDS [Concomitant]
     Dosage: DOSE: UNK

REACTIONS (1)
  - COLITIS ULCERATIVE [None]
